FAERS Safety Report 9801090 (Version 1)
Quarter: 2014Q1

REPORT INFORMATION
  Report Type: Spontaneous
  Country: US (occurrence: US)
  Receive Date: 20140107
  Receipt Date: 20140107
  Transmission Date: 20141002
  Serious: No
  Sender: FDA-Public Use
  Company Number: US-B.I. PHARMACEUTICALS,INC./RIDGEFIELD-2013-BI-44156BP

PATIENT
  Age: 62 Year
  Sex: Female
  Weight: 54 kg

DRUGS (11)
  1. PRADAXA [Suspect]
     Indication: CEREBROVASCULAR ACCIDENT PROPHYLAXIS
     Dosage: 300 MG
     Route: 048
     Dates: start: 20131202
  2. PRADAXA [Suspect]
     Indication: ATRIAL FIBRILLATION
  3. 5HTP [Concomitant]
     Dosage: (TABLET)
     Route: 048
  4. MAGNESIUM OXIDE [Concomitant]
     Dosage: 800 MG
     Route: 048
  5. PABA [Concomitant]
     Route: 048
  6. COQ10 [Concomitant]
     Route: 048
  7. CALCIUM OXIDE [Concomitant]
     Dosage: 2000 MG
     Route: 048
  8. LEVOXYL [Concomitant]
     Indication: HYPOTHYROIDISM
     Dosage: 75 MG
     Route: 048
  9. AMIODARONE [Concomitant]
     Indication: ATRIAL FIBRILLATION
     Dosage: 400 MG
     Route: 048
  10. BUSPAR [Concomitant]
     Dosage: 30 MG
     Route: 048
  11. VITAMIN D [Concomitant]
     Dosage: 1000 MG
     Route: 048

REACTIONS (4)
  - Nausea [Recovered/Resolved]
  - Diarrhoea [Recovered/Resolved]
  - Scratch [Recovered/Resolved]
  - Haemorrhage [Recovered/Resolved]
